FAERS Safety Report 7565910-5 (Version None)
Quarter: 2011Q2

REPORT INFORMATION
  Report Type: 
  Country: None (occurrence: None)
  Receive Date: 20110623
  Receipt Date: 20110610
  Transmission Date: 20111010
  Serious: Yes (Hospitalization)
  Sender: FDA-Public Use
  Company Number: IT-ELI_LILLY_AND_COMPANY-IT201106004164

PATIENT

DRUGS (2)
  1. ALIMTA [Suspect]
     Indication: LUNG ADENOCARCINOMA
     Dosage: 995
     Route: 042
     Dates: start: 20100707, end: 20100728
  2. CISPLATIN [Concomitant]
     Dosage: 115
     Route: 042
     Dates: start: 20100707, end: 20100728

REACTIONS (6)
  - GASTROINTESTINAL TOXICITY [None]
  - THROMBOCYTOPENIA [None]
  - DUODENITIS [None]
  - HYPOKALAEMIA [None]
  - HYPOVOLAEMIA [None]
  - OESOPHAGITIS [None]
